FAERS Safety Report 6781274-9 (Version None)
Quarter: 2010Q2

REPORT INFORMATION
  Report Type: 
  Country: None (occurrence: None)
  Receive Date: 20100621
  Receipt Date: 20100608
  Transmission Date: 20101027
  Serious: Yes (Other)
  Sender: FDA-Public Use
  Company Number: PHHY2010JP37132

PATIENT
  Age: 81 Year
  Sex: Male

DRUGS (2)
  1. SLOW-K [Suspect]
     Indication: HYPOKALAEMIA
     Dosage: 1200 MG DAILY
     Route: 048
     Dates: start: 20100514, end: 20100518
  2. FUROSEMIDE [Concomitant]
     Indication: DIURETIC THERAPY

REACTIONS (2)
  - HEPATIC CONGESTION [None]
  - HEPATIC FUNCTION ABNORMAL [None]
